FAERS Safety Report 5249012-9 (Version None)
Quarter: 2007Q1

REPORT INFORMATION
  Report Type: 
  Country: None (occurrence: None)
  Receive Date: 20070228
  Receipt Date: 20060518
  Transmission Date: 20070707
  Serious: No
  Sender: FDA-Public Use
  Company Number: US-GLAXOSMITHKLINE-A0606223A

PATIENT
  Age: 82 Year
  Sex: Female

DRUGS (4)
  1. VALTREX [Suspect]
     Dosage: 500MG PER DAY
     Route: 048
     Dates: start: 20050101
  2. LOPRESSOR [Concomitant]
  3. EYE DROPS [Concomitant]
     Indication: GLAUCOMA
  4. SINUS MEDICATION [Concomitant]

REACTIONS (1)
  - ALOPECIA [None]
